FAERS Safety Report 25715016 (Version 3)
Quarter: 2025Q3

REPORT INFORMATION
  Report Type: Report from Study
  Country: US (occurrence: US)
  Receive Date: 20250822
  Receipt Date: 20250925
  Transmission Date: 20251021
  Serious: Yes (Other)
  Sender: MALLINCKRODT
  Company Number: US-MALLINCKRODT-MNK202505078

PATIENT
  Age: 74 Year
  Sex: Male

DRUGS (2)
  1. CORTICOTROPIN [Suspect]
     Active Substance: CORTICOTROPIN
     Indication: Iridocyclitis
     Route: 058
  2. OLOPATADINE [Suspect]
     Active Substance: OLOPATADINE
     Indication: Product used for unknown indication

REACTIONS (3)
  - Eye operation [Unknown]
  - Dry eye [Unknown]
  - Injection site haemorrhage [Unknown]
